FAERS Safety Report 6621508-4 (Version None)
Quarter: 2010Q1

REPORT INFORMATION
  Report Type: 
  Country: None (occurrence: None)
  Receive Date: 20100217
  Receipt Date: 20100204
  Transmission Date: 20100710
  Serious: Yes (Other)
  Sender: FDA-Public Use
  Company Number: 09-496

PATIENT
  Age: 63 Year
  Sex: Male

DRUGS (7)
  1. ALEVE [Suspect]
     Indication: PROSTATITIS
     Dosage: 220 MG, ORAL
     Route: 048
     Dates: start: 20090101
  2. FINASTERIDE [Concomitant]
  3. TERAZOSIN HCL [Concomitant]
  4. OMEPRAZOLE [Concomitant]
  5. TURMERIC [Concomitant]
  6. FISH OIL [Concomitant]
  7. MILK THISTLE [Concomitant]

REACTIONS (5)
  - DRY EYE [None]
  - EYE PAIN [None]
  - RETINAL DETACHMENT [None]
  - VISION BLURRED [None]
  - VITREOUS FLOATERS [None]
